FAERS Safety Report 22612215 (Version 2)
Quarter: 2023Q2

REPORT INFORMATION
  Report Type: Spontaneous
  Country: US (occurrence: US)
  Receive Date: 20230617
  Receipt Date: 20230629
  Transmission Date: 20230721
  Serious: Yes (Death, Other)
  Sender: FDA-Public Use
  Company Number: US-AMGEN-USASP2023102548

PATIENT
  Age: 77 Year
  Sex: Male

DRUGS (2)
  1. TAVNEOS [Suspect]
     Active Substance: AVACOPAN
     Indication: Arteritis
     Dosage: UNK
     Route: 065
     Dates: start: 20230419, end: 20230525
  2. TAVNEOS [Suspect]
     Active Substance: AVACOPAN
     Indication: Off label use

REACTIONS (3)
  - Internal haemorrhage [Fatal]
  - Ammonia abnormal [Fatal]
  - Off label use [Unknown]

NARRATIVE: CASE EVENT DATE: 20230101
